FAERS Safety Report 6540827-3 (Version None)
Quarter: 2010Q1

REPORT INFORMATION
  Report Type: 
  Country: None (occurrence: None)
  Receive Date: 20100118
  Receipt Date: 20100104
  Transmission Date: 20100710
  Serious: Yes (Hospitalization)
  Sender: FDA-Public Use
  Company Number: US-ROCHE-677735

PATIENT
  Sex: Female
  Weight: 89.8 kg

DRUGS (5)
  1. PEG-INTERFERON ALFA 2A (RO 25-8310) [Suspect]
     Dosage: LAST DOSE PRIOR TO SAE: 1 JAN 2010
     Route: 058
     Dates: start: 20091222
  2. RO 5190591 (ITMN-191) [Suspect]
     Dosage: LAST DATE PRIOR TO SAE: 2 JAN 2010
     Route: 048
     Dates: start: 20091222, end: 20100103
  3. RO 5190591 (ITMN-191) [Suspect]
     Route: 048
     Dates: start: 20100104
  4. RIBAVIRIN [Suspect]
     Dosage: UNITS: MG, LAST DATE PRIOR TO SAE: 2 JAN 2010
     Route: 048
     Dates: start: 20091222, end: 20100103
  5. RIBAVIRIN [Suspect]
     Route: 048
     Dates: start: 20100104

REACTIONS (1)
  - ASCITES [None]
